FAERS Safety Report 10192440 (Version 2)
Quarter: 2014Q2

REPORT INFORMATION
  Report Type: Spontaneous
  Country: BR (occurrence: BR)
  Receive Date: 20140523
  Receipt Date: 20140523
  Transmission Date: 20141212
  Serious: Yes (Other)
  Sender: FDA-Public Use
  Company Number: BR-ASTRAZENECA-2014SE31070

PATIENT
  Age: 70 Year
  Sex: Female

DRUGS (18)
  1. SELOZOK [Suspect]
     Indication: HYPERTENSION
     Route: 048
     Dates: start: 2012
  2. OMEPRAZOLE [Suspect]
     Indication: ABDOMINAL DISCOMFORT
     Route: 048
     Dates: start: 2012
  3. CIMZIA [Suspect]
     Indication: RHEUMATOID ARTHRITIS
     Dosage: 200 MG/ML, Q2WK, TWO SYRINGES
     Route: 058
     Dates: start: 20140221, end: 20140221
  4. CIMZIA [Suspect]
     Indication: RHEUMATOID ARTHRITIS
     Dosage: 200 MG/ML, Q2WK, TWO SYRINGES
     Route: 058
     Dates: start: 20140307, end: 20140307
  5. CIMZIA [Suspect]
     Indication: RHEUMATOID ARTHRITIS
     Dosage: 200 MG/ML, Q2WK, TWO SYRINGES
     Route: 058
     Dates: start: 20140321, end: 20140321
  6. GLIFAGE [Suspect]
     Indication: DIABETES MELLITUS
     Route: 065
     Dates: start: 2012
  7. PREDNISONE [Concomitant]
     Dates: start: 2012
  8. MELOXICAM [Concomitant]
     Dates: start: 2012
  9. ALENDRONATE SODIUM [Concomitant]
     Indication: OSTEOPOROSIS PROPHYLAXIS
     Dosage: 70 MG WEEKLY, ON SATURDAY
     Dates: start: 2012
  10. LOSARTAN [Concomitant]
     Indication: HYPERTENSION
     Dates: start: 2012
  11. PURAN T4 [Concomitant]
     Indication: THYROID DISORDER
     Dates: start: 2012
  12. ARAVA [Concomitant]
  13. LEFLUNOMIDE [Concomitant]
     Indication: RHEUMATOID ARTHRITIS
     Dates: start: 2012
  14. VITAMIN E [Concomitant]
  15. CALCIUM [Concomitant]
     Indication: OSTEOPOROSIS PROPHYLAXIS
     Dates: start: 2012
  16. ETANOZETE  (NOT FOUND) [Concomitant]
  17. VITAMIN D3 [Concomitant]
     Indication: OSTEOPOROSIS PROPHYLAXIS
     Dates: start: 2012
  18. MIRTAX [Concomitant]
     Indication: MUSCLE RELAXANT THERAPY

REACTIONS (3)
  - Herpes virus infection [Recovering/Resolving]
  - Dry skin [Not Recovered/Not Resolved]
  - Pruritus [Recovered/Resolved]
